FAERS Safety Report 4912473-6 (Version None)
Quarter: 2006Q1

REPORT INFORMATION
  Report Type: 
  Country: None (occurrence: None)
  Receive Date: 20060215
  Receipt Date: 20050421
  Transmission Date: 20060701
  Serious: No
  Sender: FDA-Public Use
  Company Number: US-GLAXOSMITHKLINE-A0555237A

PATIENT
  Age: 45 Year
  Sex: Female

DRUGS (6)
  1. VALTREX [Suspect]
     Dosage: 500MG AS REQUIRED
     Route: 048
     Dates: start: 20050411, end: 20050421
  2. GARLIC [Concomitant]
  3. GRAPEFRUIT SEED EXTRACT [Concomitant]
  4. FLAX-OIL [Concomitant]
  5. ANTIBIOTICS [Concomitant]
  6. ACIDOPHILUS [Concomitant]

REACTIONS (4)
  - CONSTIPATION [None]
  - DRUG INEFFECTIVE [None]
  - ERYTHEMA [None]
  - FATIGUE [None]
